FAERS Safety Report 20658788 (Version 1)
Quarter: 2022Q1

REPORT INFORMATION
  Report Type: Spontaneous
  Country: DE (occurrence: DE)
  Receive Date: 20220331
  Receipt Date: 20220331
  Transmission Date: 20220423
  Serious: Yes (Other)
  Sender: FDA-Public Use
  Company Number: None

PATIENT
  Age: 45 Year
  Sex: Female
  Weight: 62 kg

DRUGS (1)
  1. BUDESONIDE [Suspect]
     Active Substance: BUDESONIDE
     Indication: Asthma
     Dosage: 2 DOSAGE FORM, QD (1 PUFF IN THE MORNING AND IN THE EVENING)
     Route: 055
     Dates: start: 20220118, end: 20220221

REACTIONS (2)
  - Oesophageal candidiasis [Unknown]
  - Throat irritation [Unknown]

NARRATIVE: CASE EVENT DATE: 20220211
